FAERS Safety Report 8452640-0 (Version None)
Quarter: 2012Q2

REPORT INFORMATION
  Report Type: 
  Country: None (occurrence: None)
  Receive Date: 20120620
  Receipt Date: 20120423
  Transmission Date: 20120825
  Serious: Yes (Hospitalization)
  Sender: FDA-Public Use
  Company Number: US-VERTEX PHARMACEUTICALS INC.-AE-2012-005743

PATIENT
  Sex: Male
  Weight: 35.412 kg

DRUGS (6)
  1. ANALPRAM [Concomitant]
     Dates: start: 20120302
  2. INCIVEK [Suspect]
     Indication: HEPATITIS C
     Route: 048
     Dates: start: 20120101, end: 20120413
  3. PEGASYS [Concomitant]
     Indication: HEPATITIS C
     Route: 058
     Dates: start: 20120101
  4. MIRALAX [Concomitant]
     Dates: start: 20120302
  5. INCIVEK [Suspect]
     Route: 048
     Dates: start: 20120420
  6. RIBAVIRIN [Concomitant]
     Indication: HEPATITIS C
     Route: 048
     Dates: start: 20120101

REACTIONS (1)
  - ANAEMIA [None]
